FAERS Safety Report 7118296-4 (Version None)
Quarter: 2010Q4

REPORT INFORMATION
  Report Type: 
  Country: None (occurrence: None)
  Receive Date: 20101123
  Receipt Date: 20101111
  Transmission Date: 20110411
  Serious: Yes (Other)
  Sender: FDA-Public Use
  Company Number: US-JNJFOC-20101105075

PATIENT
  Sex: Female

DRUGS (4)
  1. LEVAQUIN [Suspect]
     Indication: SINUSITIS
     Route: 065
  2. LEVAQUIN [Suspect]
     Route: 065
  3. AZITHROMYCIN [Suspect]
     Indication: SINUSITIS
     Route: 065
  4. BETASERON [Suspect]
     Indication: MULTIPLE SCLEROSIS
     Route: 058

REACTIONS (13)
  - BALANCE DISORDER [None]
  - DRUG HYPERSENSITIVITY [None]
  - DRY SKIN [None]
  - HYPOAESTHESIA [None]
  - JOINT SWELLING [None]
  - MELANOCYTIC NAEVUS [None]
  - MENISCUS LESION [None]
  - MULTIPLE SCLEROSIS RELAPSE [None]
  - NECK PAIN [None]
  - OEDEMA PERIPHERAL [None]
  - TEMPERATURE INTOLERANCE [None]
  - TENDONITIS [None]
  - VISUAL ACUITY REDUCED [None]
